FAERS Safety Report 19012672 (Version 1)
Quarter: 2021Q1

REPORT INFORMATION
  Report Type: Spontaneous
  Country: US (occurrence: US)
  Receive Date: 20210315
  Receipt Date: 20210315
  Transmission Date: 20210420
  Serious: No
  Sender: FDA-Public Use
  Company Number: None

PATIENT
  Age: 8 Year
  Sex: Male
  Weight: 22.68 kg

DRUGS (6)
  1. QUILLACHEW XR [Concomitant]
  2. NORDITROPIN [Concomitant]
     Active Substance: SOMATROPIN
  3. VITAMIN D [Concomitant]
     Active Substance: VITAMIN D NOS
  4. GUANFACINE. [Suspect]
     Active Substance: GUANFACINE
     Indication: ATTENTION DEFICIT HYPERACTIVITY DISORDER
     Route: 048
     Dates: start: 2017, end: 2017
  5. INTUNIV [Concomitant]
     Active Substance: GUANFACINE HYDROCHLORIDE
  6. GUANFACINE. [Suspect]
     Active Substance: GUANFACINE
     Indication: ANXIETY
     Route: 048
     Dates: start: 2017, end: 2017

REACTIONS (3)
  - Anxiety [None]
  - Abnormal behaviour [None]
  - Anger [None]
